FAERS Safety Report 13600315 (Version 3)
Quarter: 2017Q3

REPORT INFORMATION
  Report Type: Spontaneous
  Country: US (occurrence: US)
  Receive Date: 20170601
  Receipt Date: 20170706
  Transmission Date: 20171127
  Serious: No
  Sender: FDA-Public Use
  Company Number: US-PFIZER INC-2017234388

PATIENT
  Age: 21 Year
  Sex: Female

DRUGS (1)
  1. XELJANZ XR [Suspect]
     Active Substance: TOFACITINIB CITRATE
     Indication: RHEUMATOID ARTHRITIS
     Dosage: 11 MG, DAILY

REACTIONS (10)
  - Joint range of motion decreased [Unknown]
  - Erythema [Unknown]
  - Joint crepitation [Unknown]
  - Weight increased [Unknown]
  - Soft tissue swelling [Not Recovered/Not Resolved]
  - Musculoskeletal stiffness [Unknown]
  - Joint swelling [Not Recovered/Not Resolved]
  - Stomatitis [Unknown]
  - Dry mouth [Unknown]
  - Arthralgia [Not Recovered/Not Resolved]
